FAERS Safety Report 10533930 (Version 1)
Quarter: 2014Q4

REPORT INFORMATION
  Report Type: Spontaneous
  Country: US (occurrence: None)
  Receive Date: 20141020
  Receipt Date: 20141020
  Transmission Date: 20150529
  Serious: Yes (Death)
  Sender: FDA-Public Use
  Company Number: US-MDCO-14-00248

PATIENT
  Age: 59 Year
  Sex: Male
  Weight: 87.9 kg

DRUGS (1)
  1. ANGIOMAX [Suspect]
     Active Substance: BIVALIRUDIN
     Indication: CORONARY ANGIOPLASTY
     Dosage: PER HOUR, DRIP
     Route: 042
     Dates: start: 20140626, end: 20140626

REACTIONS (1)
  - Death [None]
